FAERS Safety Report 4986281-4 (Version None)
Quarter: 2006Q2

REPORT INFORMATION
  Report Type: 
  Country: None (occurrence: None)
  Receive Date: 20060428
  Receipt Date: 20060421
  Transmission Date: 20061013
  Serious: Yes (Hospitalization)
  Sender: FDA-Public Use
  Company Number: US-MERCK-0604USA03644

PATIENT
  Age: 54 Year
  Sex: Male
  Weight: 130 kg

DRUGS (5)
  1. VIOXX [Suspect]
     Indication: ARTHRITIS
     Route: 048
     Dates: start: 19990601, end: 20030101
  2. TOPROL-XL [Concomitant]
     Route: 065
  3. DIOVAN [Concomitant]
     Route: 065
  4. BEXTRA [Concomitant]
     Route: 065
  5. CLONIDINE [Concomitant]
     Route: 065

REACTIONS (1)
  - CEREBROVASCULAR ACCIDENT [None]
